FAERS Safety Report 23801639 (Version 1)
Quarter: 2024Q2

REPORT INFORMATION
  Report Type: Report from Study
  Country: US (occurrence: US)
  Receive Date: 20240430
  Receipt Date: 20240430
  Transmission Date: 20240716
  Serious: Yes (Hospitalization, Other)
  Sender: FDA-Public Use
  Company Number: US-ABBVIE-5727744

PATIENT
  Age: 63 Year
  Sex: Female
  Weight: 73 kg

DRUGS (2)
  1. HUMIRA [Suspect]
     Active Substance: ADALIMUMAB
     Indication: Uveitis
     Dosage: FORM STRENGTH: 40 MILLIGRAM?CITRATE FREE
     Route: 058
     Dates: start: 20210921
  2. HUMIRA [Suspect]
     Active Substance: ADALIMUMAB
     Dosage: FORM STRENGTH: 40 MG?CITRATE FREE
     Route: 058

REACTIONS (22)
  - Pericarditis [Not Recovered/Not Resolved]
  - Hernia [Not Recovered/Not Resolved]
  - Gastritis [Not Recovered/Not Resolved]
  - Gastrooesophageal reflux disease [Not Recovered/Not Resolved]
  - Acquired oesophageal web [Not Recovered/Not Resolved]
  - Rales [Not Recovered/Not Resolved]
  - Reflux laryngitis [Unknown]
  - Lung diffusion test decreased [Not Recovered/Not Resolved]
  - Interstitial lung disease [Unknown]
  - Erosive oesophagitis [Not Recovered/Not Resolved]
  - Dyspnoea [Unknown]
  - Weight decreased [Unknown]
  - Feeding disorder [Unknown]
  - Lymphocytic infiltration [Unknown]
  - Asthma [Not Recovered/Not Resolved]
  - Basal cell carcinoma [Unknown]
  - COVID-19 [Unknown]
  - Interstitial lung disease [Unknown]
  - Granuloma [Unknown]
  - Sleep disorder [Unknown]
  - Cataract [Unknown]
  - Lung opacity [Unknown]

NARRATIVE: CASE EVENT DATE: 20221014
